FAERS Safety Report 4631456-7 (Version None)
Quarter: 2005Q2

REPORT INFORMATION
  Report Type: 
  Country: None (occurrence: None)
  Receive Date: 20050407
  Receipt Date: 20050325
  Transmission Date: 20051028
  Serious: Yes (Other)
  Sender: FDA-Public Use
  Company Number: HQWYE733206APR05

PATIENT
  Sex: Female

DRUGS (1)
  1. INDERAL [Suspect]
     Indication: LONG QT SYNDROME CONGENITAL
     Dosage: 30 MG 1X PER 1 DAY TRANSPLACENTAL
     Route: 064
     Dates: start: 20031101, end: 20040910

REACTIONS (3)
  - CONGENITAL ANOMALY [None]
  - DRUG EXPOSURE DURING PREGNANCY [None]
  - ELECTROCARDIOGRAM PR PROLONGATION [None]
